FAERS Safety Report 5151990-3 (Version None)
Quarter: 2006Q4

REPORT INFORMATION
  Report Type: 
  Country: None (occurrence: None)
  Receive Date: 20061116
  Receipt Date: 20061108
  Transmission Date: 20070319
  Serious: Yes (Other)
  Sender: FDA-Public Use
  Company Number: 2006UW22659

PATIENT
  Age: 13 Year
  Sex: Male

DRUGS (1)
  1. LOSEC [Suspect]
     Indication: GASTROOESOPHAGEAL REFLUX DISEASE
     Route: 050

REACTIONS (2)
  - DEVICE OCCLUSION [None]
  - PHARMACEUTICAL PRODUCT COMPLAINT [None]
